FAERS Safety Report 22275033 (Version 1)
Quarter: 2023Q2

REPORT INFORMATION
  Report Type: Spontaneous
  Country: US (occurrence: US)
  Receive Date: 20230502
  Receipt Date: 20230502
  Transmission Date: 20230721
  Serious: Yes (Hospitalization)
  Sender: FDA-Public Use
  Company Number: US-drreddys-LIT/USA/23/0164393

PATIENT
  Age: 21 Year
  Sex: Male

DRUGS (11)
  1. ATOMOXETINE HYDROCHLORIDE [Interacting]
     Active Substance: ATOMOXETINE HYDROCHLORIDE
     Indication: Attention deficit hyperactivity disorder
  2. ATOMOXETINE HYDROCHLORIDE [Interacting]
     Active Substance: ATOMOXETINE HYDROCHLORIDE
     Indication: Major depression
     Dosage: INCREASED DOSE
  3. LORAZEPAM [Suspect]
     Active Substance: LORAZEPAM
     Indication: Agitation
  4. QUETIAPINE FUMARATE [Suspect]
     Active Substance: QUETIAPINE FUMARATE
     Indication: Insomnia
     Dosage: AT NIGHT
  5. QUETIAPINE FUMARATE [Suspect]
     Active Substance: QUETIAPINE FUMARATE
     Dosage: AT NIGHT
  6. QUETIAPINE FUMARATE [Suspect]
     Active Substance: QUETIAPINE FUMARATE
     Dosage: AT NIGHT
  7. NICOTINE [Suspect]
     Active Substance: NICOTINE
     Indication: Product used for unknown indication
  8. DIVALPROEX SODIUM [Suspect]
     Active Substance: DIVALPROEX SODIUM
     Indication: Product used for unknown indication
  9. BUPROPION [Suspect]
     Active Substance: BUPROPION
     Indication: Major depression
  10. BUPROPION [Suspect]
     Active Substance: BUPROPION
     Indication: Attention deficit hyperactivity disorder
  11. ALPRAZOLAM [Concomitant]
     Active Substance: ALPRAZOLAM
     Indication: Anxiety

REACTIONS (6)
  - Toxicity to various agents [Unknown]
  - Drug interaction [Unknown]
  - Seizure [Unknown]
  - Psychotic disorder [Unknown]
  - Manic symptom [Unknown]
  - Product use in unapproved indication [Unknown]
